FAERS Safety Report 5445738-2 (Version None)
Quarter: 2007Q3

REPORT INFORMATION
  Report Type: 
  Country: None (occurrence: None)
  Receive Date: 20070904
  Receipt Date: 20070821
  Transmission Date: 20080115
  Serious: Yes (Hospitalization)
  Sender: FDA-Public Use
  Company Number: 015408

PATIENT
  Age: 59 Year
  Sex: Female
  Weight: 71.7 kg

DRUGS (3)
  1. THEOPHYLLINE [Suspect]
     Indication: ASTHMA
     Dosage: ORAL
     Route: 048
     Dates: start: 19770101
  2. ALBUTEROL [Concomitant]
  3. PULMICORT [Concomitant]

REACTIONS (4)
  - ASTHMA [None]
  - BUNION OPERATION [None]
  - CONDITION AGGRAVATED [None]
  - THROMBOSIS [None]
